FAERS Safety Report 18084647 (Version 1)
Quarter: 2020Q3

REPORT INFORMATION
  Report Type: Other
  Country: CA (occurrence: CA)
  Receive Date: 20200729
  Receipt Date: 20200729
  Transmission Date: 20201103
  Serious: Yes (Hospitalization, Other)
  Sender: FDA-Public Use
  Company Number: CA-APOTEX-2020AP014577

PATIENT
  Age: 17 Year
  Sex: Male

DRUGS (1)
  1. AMOXICILLIN AND CLAVULANATE POTASSIUM [Suspect]
     Active Substance: AMOXICILLIN\CLAVULANATE POTASSIUM
     Indication: PRODUCT USED FOR UNKNOWN INDICATION
     Route: 065

REACTIONS (9)
  - Bacteraemia [Unknown]
  - Pneumonia [Unknown]
  - Symblepharon [Unknown]
  - Stevens-Johnson syndrome [Unknown]
  - Dry eye [Unknown]
  - Pyrexia [Unknown]
  - Mucosal disorder [Unknown]
  - Toxic epidermal necrolysis [Unknown]
  - Corneal abrasion [Unknown]
